FAERS Safety Report 11785344 (Version 1)
Quarter: 2015Q4

REPORT INFORMATION
  Report Type: Spontaneous
  Country: US (occurrence: US)
  Receive Date: 20151130
  Receipt Date: 20151130
  Transmission Date: 20160305
  Serious: No
  Sender: FDA-Public Use
  Company Number: US-JNJFOC-20150918680

PATIENT
  Age: 90 Year
  Sex: Female
  Weight: 49.9 kg

DRUGS (1)
  1. TYLENOL EXTRA STRENGTH [Suspect]
     Active Substance: ACETAMINOPHEN
     Indication: PRODUCT USED FOR UNKNOWN INDICATION
     Dosage: 1 CAPLET, 1X AT 1AM.
     Route: 048
     Dates: start: 20150921, end: 20150921

REACTIONS (1)
  - Poor quality sleep [Unknown]

NARRATIVE: CASE EVENT DATE: 20150921
